FAERS Safety Report 5216688-1 (Version None)
Quarter: 2006Q4

REPORT INFORMATION
  Report Type: 
  Country: None (occurrence: None)
  Receive Date: 20061130
  Receipt Date: 20060411
  Transmission Date: 20070319
  Serious: Yes (Other)
  Sender: FDA-Public Use
  Company Number: US200604001949

PATIENT
  Sex: Male

DRUGS (1)
  1. ZYPREXA [Suspect]

REACTIONS (1)
  - KETOACIDOSIS [None]
